FAERS Safety Report 23863219 (Version 1)
Quarter: 2024Q2

REPORT INFORMATION
  Report Type: Spontaneous
  Country: ES (occurrence: ES)
  Receive Date: 20240516
  Receipt Date: 20240516
  Transmission Date: 20240716
  Serious: Yes (Other)
  Sender: FDA-Public Use
  Company Number: ES-MYLANLABS-2024M1043790

PATIENT
  Age: 54 Year
  Sex: Female

DRUGS (9)
  1. BORTEZOMIB [Suspect]
     Active Substance: BORTEZOMIB
     Indication: Plasma cell myeloma
     Dosage: 1.3 MILLIGRAM/SQ. METER; ON DAYS 1, 8, 15, AND 22
     Route: 058
     Dates: start: 202209, end: 2022
  2. BORTEZOMIB [Suspect]
     Active Substance: BORTEZOMIB
     Dosage: UNK; DOSE NOT STATED
     Route: 058
     Dates: start: 202210
  3. LENALIDOMIDE [Suspect]
     Active Substance: LENALIDOMIDE
     Indication: Plasma cell myeloma
     Dosage: 25 MILLIGRAM, QD; FOR 14 DAYS
     Route: 048
     Dates: start: 202209, end: 2022
  4. LENALIDOMIDE [Suspect]
     Active Substance: LENALIDOMIDE
     Dosage: UNK; DOSE NOT STATED
     Route: 048
     Dates: start: 202210
  5. DARATUMUMAB [Suspect]
     Active Substance: DARATUMUMAB
     Indication: Plasma cell myeloma
     Dosage: 1800 MILLIGRAM; ON DAYS 1 AND 15
     Route: 058
     Dates: start: 202210, end: 20230410
  6. COTRIMOXAZOLE [Concomitant]
     Active Substance: SULFAMETHOXAZOLE\TRIMETHOPRIM
     Indication: Antibiotic therapy
     Dosage: UNK
     Route: 065
     Dates: end: 2022
  7. ALLOPURINOL [Concomitant]
     Active Substance: ALLOPURINOL
     Indication: Product used for unknown indication
     Dosage: UNK
     Route: 065
     Dates: end: 2022
  8. DEXAMETHASONE [Concomitant]
     Active Substance: DEXAMETHASONE
     Indication: Plasma cell myeloma
     Dosage: 40 MILLIGRAM; ON DAYS 1, 8, 15, AND 22
     Route: 048
     Dates: start: 202209, end: 2022
  9. DEXAMETHASONE [Concomitant]
     Active Substance: DEXAMETHASONE
     Dosage: UNK; DOSE NOT STATED
     Route: 048
     Dates: start: 202210

REACTIONS (1)
  - Treatment failure [Unknown]
